FAERS Safety Report 4279248-5 (Version None)
Quarter: 2004Q1

REPORT INFORMATION
  Report Type: 
  Country: None (occurrence: None)
  Receive Date: 20040126
  Receipt Date: 20040126
  Transmission Date: 20041129
  Serious: Yes (Other)
  Sender: FDA-Public Use
  Company Number: None

PATIENT
  Age: 87 Year
  Sex: Male
  Weight: 102.1 kg

DRUGS (8)
  1. TERAZOSIN HCL [Suspect]
  2. COUMADIN [Concomitant]
  3. FOSINOPRIL NA [Concomitant]
  4. SYNTHROID [Concomitant]
  5. SIMVASTATIN [Concomitant]
  6. ATENOLOL [Concomitant]
  7. DOCUSATE NA [Concomitant]
  8. OXYBUTYNIN CHLORIDE [Concomitant]

REACTIONS (1)
  - DIZZINESS [None]
